FAERS Safety Report 13238226 (Version 3)
Quarter: 2017Q3

REPORT INFORMATION
  Report Type: Spontaneous
  Country: LB (occurrence: LB)
  Receive Date: 20170216
  Receipt Date: 20170914
  Transmission Date: 20171127
  Serious: Yes (Hospitalization, Other)
  Sender: FDA-Public Use
  Company Number: LB-SUN PHARMACEUTICAL INDUSTRIES LTD-2016R1-126897

PATIENT
  Age: 50 Year
  Sex: Female

DRUGS (7)
  1. OLANZAPINE. [Concomitant]
     Active Substance: OLANZAPINE
     Dosage: 10 MG, DAILY
     Route: 065
  2. VALSARTAN. [Interacting]
     Active Substance: VALSARTAN
     Indication: HYPERTENSION
     Dosage: SINCE MORE THAN 5 YEARS
     Route: 065
  3. LITHIUM. [Suspect]
     Active Substance: LITHIUM
     Indication: DEPRESSION
     Dosage: CONTROLLED RELEASE
     Route: 065
  4. LEVOTHYROXINE. [Concomitant]
     Active Substance: LEVOTHYROXINE
     Indication: HYPOTHYROIDISM
     Dosage: SINCE MORE THAN 5 YEARS
     Route: 065
  5. DIAZEPAM. [Concomitant]
     Active Substance: DIAZEPAM
     Indication: DEPRESSION
     Dosage: PROGRESSIVELY WITHDRAWN FROM 15 MG DAILY
     Route: 065
  6. LITHIUM. [Interacting]
     Active Substance: LITHIUM
     Dosage: 800 MG, DAILY
     Route: 065
  7. OLANZAPINE. [Concomitant]
     Active Substance: OLANZAPINE
     Indication: DEPRESSION
     Dosage: 5 MG, DAILY
     Route: 065

REACTIONS (5)
  - Drug interaction [Unknown]
  - Dysgeusia [Recovered/Resolved]
  - Toxicity to various agents [Unknown]
  - Salivary hypersecretion [Recovered/Resolved]
  - Polyuria [Unknown]
